FAERS Safety Report 5382151-0 (Version None)
Quarter: 2007Q3

REPORT INFORMATION
  Report Type: 
  Country: None (occurrence: None)
  Receive Date: 20070709
  Receipt Date: 20070628
  Transmission Date: 20080115
  Serious: Yes (Death, Hospitalization)
  Sender: FDA-Public Use
  Company Number: HQWYE848128JUN07

PATIENT
  Age: 79 Year
  Sex: Female

DRUGS (6)
  1. CORDARONE [Suspect]
     Route: 048
     Dates: start: 20050501, end: 20070427
  2. TRIATEC [Concomitant]
     Route: 048
  3. PREVISCAN [Concomitant]
     Route: 048
  4. ALDACTONE [Concomitant]
     Route: 048
  5. LASIX [Concomitant]
     Dosage: 20 MG DOSE AND FREQUENCY UNSPECIFIED
     Route: 048
     Dates: start: 19911001
  6. LEVOTHYROXINE SODIUM [Concomitant]
     Dosage: 62.5 PG, DOSE AND FREQUENCY UNSPECIFIED
     Route: 048
     Dates: start: 20050101

REACTIONS (2)
  - PULMONARY FIBROSIS [None]
  - SUPERINFECTION [None]
